FAERS Safety Report 14390609 (Version 3)
Quarter: 2018Q1

REPORT INFORMATION
  Report Type: Report from Study
  Country: None (occurrence: US)
  Receive Date: 20180116
  Receipt Date: 20180208
  Transmission Date: 20180509
  Serious: Yes (Hospitalization, Other)
  Sender: FDA-Public Use
  Company Number: US-ABBVIE-17K-163-2207477-00

PATIENT
  Sex: Male
  Weight: 117.13 kg

DRUGS (2)
  1. HUMIRA [Suspect]
     Active Substance: ADALIMUMAB
     Indication: PSORIASIS
     Route: 058
     Dates: start: 2016
  2. HUMIRA [Suspect]
     Active Substance: ADALIMUMAB
     Indication: PSORIATIC ARTHROPATHY

REACTIONS (8)
  - Fall [Unknown]
  - Concussion [Recovering/Resolving]
  - Neck pain [Recovering/Resolving]
  - Traumatic intracranial haemorrhage [Recovering/Resolving]
  - Blood glucose decreased [Recovered/Resolved]
  - Psoriasis [Recovering/Resolving]
  - Balance disorder [Unknown]
  - Post procedural complication [Unknown]

NARRATIVE: CASE EVENT DATE: 201712
